FAERS Safety Report 5739489-4 (Version None)
Quarter: 2008Q2

REPORT INFORMATION
  Report Type: 
  Country: None (occurrence: None)
  Receive Date: 20080515
  Receipt Date: 20080507
  Transmission Date: 20081010
  Serious: Yes (Other)
  Sender: FDA-Public Use
  Company Number: PHHY2008AU07291

PATIENT
  Age: 38 Year
  Sex: Female

DRUGS (3)
  1. FAMVIR [Suspect]
     Indication: HERPES SIMPLEX
     Dosage: 250 MG/DAY
     Route: 048
     Dates: start: 19980106, end: 19980209
  2. ALDACTONE [Concomitant]
     Indication: MENSTRUAL DISORDER
     Dosage: 100 MG/DAY
     Dates: start: 19971010
  3. AROPAX [Concomitant]
     Indication: DEPRESSION
     Dosage: 20 MG/DAY
     Dates: start: 19971201

REACTIONS (3)
  - DIARRHOEA [None]
  - FLATULENCE [None]
  - MELAENA [None]
